FAERS Safety Report 13510164 (Version 1)
Quarter: 2017Q2

REPORT INFORMATION
  Report Type: Spontaneous
  Country: UA (occurrence: UA)
  Receive Date: 20170503
  Receipt Date: 20170503
  Transmission Date: 20170830
  Serious: Yes (Other)
  Sender: FDA-Public Use
  Company Number: UA-GLENMARK PHARMACEUTICALS-2017GMK027298

PATIENT
  Age: 26 Year
  Sex: Female

DRUGS (2)
  1. DICLOFENAC SODIUM. [Suspect]
     Active Substance: DICLOFENAC SODIUM
     Indication: ARTHROPATHY
     Dosage: UNK
     Route: 065
  2. PREDNISOLONE. [Suspect]
     Active Substance: PREDNISOLONE
     Indication: ARTHROPATHY
     Dosage: UNK
     Route: 065

REACTIONS (3)
  - Hypersensitivity vasculitis [Recovering/Resolving]
  - Dermatitis [Recovering/Resolving]
  - Conjunctivitis [Recovering/Resolving]
